FAERS Safety Report 10714571 (Version 1)
Quarter: 2015Q1

REPORT INFORMATION
  Report Type: Spontaneous
  Country: US (occurrence: US)
  Receive Date: 20150115
  Receipt Date: 20150115
  Transmission Date: 20150721
  Serious: Yes (Other)
  Sender: FDA-Public Use
  Company Number: US-PFIZER INC-2015015326

PATIENT
  Age: 85 Year
  Sex: Female
  Weight: 79 kg

DRUGS (1)
  1. XALATAN [Suspect]
     Active Substance: LATANOPROST
     Dosage: 2 GTT (1 GTT IN EACH EYE), 2X/DAY
     Route: 047

REACTIONS (3)
  - Hypoacusis [Not Recovered/Not Resolved]
  - Cataract [Unknown]
  - Incorrect dose administered [Not Recovered/Not Resolved]
